FAERS Safety Report 6960851-6 (Version None)
Quarter: 2010Q3

REPORT INFORMATION
  Report Type: 
  Country: None (occurrence: None)
  Receive Date: 20100901
  Receipt Date: 20100823
  Transmission Date: 20110219
  Serious: Yes (Hospitalization)
  Sender: FDA-Public Use
  Company Number: US-PFIZER INC-2010106277

PATIENT
  Age: 68 Year
  Sex: Male

DRUGS (5)
  1. QUINAPRIL HCL [Suspect]
     Dosage: 10 MG, 1X/DAY
  2. NAPROXEN SODIUM [Suspect]
     Indication: PAIN
     Dosage: 375 MG, 3X/DAY, AS NEEDED
  3. TAMSULOSIN HYDROCHLORIDE [Concomitant]
     Dosage: 0.4 MG, 1X/DAY
  4. OMEPRAZOLE [Concomitant]
     Dosage: 20 MG, 1X/DAY
  5. COLCHICINE [Concomitant]
     Dosage: 0.6 MG, 1X/DAY

REACTIONS (2)
  - ANGIOEDEMA [None]
  - DRUG INTERACTION [None]
